FAERS Safety Report 12071760 (Version 1)
Quarter: 2016Q1

REPORT INFORMATION
  Report Type: Not Available
  Country: FR (occurrence: FR)
  Receive Date: 20160212
  Receipt Date: 20160212
  Transmission Date: 20160526
  Serious: Yes (Other)
  Sender: FDA-Public Use
  Company Number: FR-BEH-2016058766

PATIENT
  Age: 79 Year
  Sex: Male

DRUGS (6)
  1. DEBRIDAT [Suspect]
     Active Substance: TRIMEBUTINE MALEATE
     Dosage: 1DF 3 DAYS
     Route: 048
     Dates: start: 20150914
  2. PRIVIGEN [Suspect]
     Active Substance: HUMAN IMMUNOGLOBULIN G
     Indication: PRODUCT USED FOR UNKNOWN INDICATION
     Dosage: ??-SEP-2015
     Route: 042
  3. QUESTRAN [Concomitant]
     Active Substance: CHOLESTYRAMINE
  4. RIVOTRIL [Concomitant]
     Active Substance: CLONAZEPAM
  5. PRIVIGEN [Suspect]
     Active Substance: HUMAN IMMUNOGLOBULIN G
     Dosage: ??-SEP-2015
     Route: 042
  6. STRESAM [Concomitant]
     Active Substance: ETIFOXINE

REACTIONS (6)
  - Rash papular [Recovering/Resolving]
  - Rash vesicular [Recovering/Resolving]
  - Rash [Recovering/Resolving]
  - Erythema [Recovering/Resolving]
  - Palmar erythema [Recovering/Resolving]
  - Eczema [Recovering/Resolving]

NARRATIVE: CASE EVENT DATE: 20151005
